FAERS Safety Report 4961627-1 (Version None)
Quarter: 2006Q1

REPORT INFORMATION
  Report Type: 
  Country: None (occurrence: None)
  Receive Date: 20060329
  Receipt Date: 20060316
  Transmission Date: 20060701
  Serious: Yes (Death)
  Sender: FDA-Public Use
  Company Number: 13749

PATIENT
  Age: 13 Year
  Sex: Female

DRUGS (6)
  1. ACYCLOVIR [Suspect]
     Indication: PROPHYLAXIS
     Dosage: 1000 MG QID PO
     Route: 048
  2. ACYCLOVIR [Suspect]
     Indication: VARICELLA
     Dosage: 1000 MG QID PO
     Route: 048
  3. ACYCLOVIR [Suspect]
     Indication: PROPHYLAXIS
     Dosage: 10 MG/KG TID IV
     Route: 042
  4. ACYCLOVIR [Suspect]
     Indication: VARICELLA
     Dosage: 10 MG/KG TID IV
     Route: 042
  5. PREDNISOLONE [Concomitant]
  6. AZATHIOPRINE [Concomitant]

REACTIONS (12)
  - ASPERGILLOSIS [None]
  - CANDIDA SEROLOGY POSITIVE [None]
  - CHOLESTASIS [None]
  - DISSEMINATED INTRAVASCULAR COAGULATION [None]
  - DRUG INEFFECTIVE [None]
  - HEPATIC FAILURE [None]
  - HERPES ZOSTER [None]
  - HISTIOCYTOSIS HAEMATOPHAGIC [None]
  - MULTI-ORGAN FAILURE [None]
  - PLEURAL EFFUSION [None]
  - SYSTEMIC MYCOSIS [None]
  - VARICELLA [None]
